FAERS Safety Report 18187007 (Version 1)
Quarter: 2020Q3

REPORT INFORMATION
  Report Type: Spontaneous
  Country: US (occurrence: US)
  Receive Date: 20200824
  Receipt Date: 20200824
  Transmission Date: 20201103
  Serious: Yes (Other)
  Sender: FDA-Public Use
  Company Number: US-UCBSA-2020032542

PATIENT
  Sex: Male

DRUGS (8)
  1. VIMPAT [Suspect]
     Active Substance: LACOSAMIDE
     Dosage: VIMPAT DOSE WEANED BY 50MG ON 27MAY2020
     Dates: start: 20200527, end: 20200609
  2. EPIDIOLEX [Concomitant]
     Active Substance: CANNABIDIOL
     Indication: EPILEPSY
     Dosage: UNK
  3. VIMPAT [Suspect]
     Active Substance: LACOSAMIDE
     Indication: SEIZURE
     Dosage: VIMPAT DOSE WEANED BY 50MG 28?APR?2020
     Dates: start: 20200428, end: 20200512
  4. DILANTIN [Concomitant]
     Active Substance: PHENYTOIN
     Indication: EPILEPSY
  5. ZONEGRAN [Concomitant]
     Active Substance: ZONISAMIDE
     Indication: EPILEPSY
     Dosage: UNK
  6. VIMPAT [Suspect]
     Active Substance: LACOSAMIDE
     Dosage: VIMPAT DOSE WEANED BY 50MG ON13MAY2020
     Dates: start: 20200513, end: 20200526
  7. DEPAKOTE [Concomitant]
     Active Substance: DIVALPROEX SODIUM
     Indication: EPILEPSY
     Dosage: UNK
  8. VIMPAT [Suspect]
     Active Substance: LACOSAMIDE
     Indication: EPILEPSY
     Dosage: 200 MILLIGRAM, 2X/DAY (BID)
     Dates: end: 20200427

REACTIONS (2)
  - Lethargy [Not Recovered/Not Resolved]
  - Coordination abnormal [Not Recovered/Not Resolved]

NARRATIVE: CASE EVENT DATE: 2020
